FAERS Safety Report 13180962 (Version 1)
Quarter: 2017Q1

REPORT INFORMATION
  Report Type: Spontaneous
  Country: US (occurrence: US)
  Receive Date: 20170202
  Receipt Date: 20170202
  Transmission Date: 20170428
  Serious: No
  Sender: FDA-Public Use
  Company Number: US-SMITH AND NEPHEW, INC-2016SMT00736

PATIENT
  Sex: Female
  Weight: 77.98 kg

DRUGS (4)
  1. REGRANEX [Suspect]
     Active Substance: BECAPLERMIN
     Indication: DECUBITUS ULCER
     Dosage: UNK, 1X/DAY
     Route: 061
     Dates: start: 20160707
  2. UNSPECIFIED BLOOD PRESSURE MEDICATIONS [Concomitant]
  3. UNSPECIFIED DIABETES MEDICATIONS [Concomitant]
  4. UNSPECIFIED HEART MEDICATIONS [Concomitant]

REACTIONS (2)
  - Wound secretion [Unknown]
  - Wound complication [Unknown]

NARRATIVE: CASE EVENT DATE: 2016
